FAERS Safety Report 10189016 (Version 1)
Quarter: 2014Q2

REPORT INFORMATION
  Report Type: Spontaneous
  Country: US (occurrence: US)
  Receive Date: 20140522
  Receipt Date: 20140522
  Transmission Date: 20141212
  Serious: Yes (Other)
  Sender: FDA-Public Use
  Company Number: US-PFIZER INC-2014138701

PATIENT
  Sex: Female

DRUGS (2)
  1. CHANTIX [Suspect]
     Dosage: 0.5 MG, UNK
  2. CHANTIX [Suspect]
     Dosage: 1 MG, UNK

REACTIONS (8)
  - Depression [Unknown]
  - Irritability [Unknown]
  - Somnolence [Unknown]
  - Fatigue [Unknown]
  - Nightmare [Unknown]
  - Pruritus [Unknown]
  - Rash [Unknown]
  - Gastrooesophageal reflux disease [Unknown]
